FAERS Safety Report 18195790 (Version 2)
Quarter: 2020Q4

REPORT INFORMATION
  Report Type: Spontaneous
  Country: GB (occurrence: GB)
  Receive Date: 20200826
  Receipt Date: 20201007
  Transmission Date: 20210113
  Serious: Yes (Life-Threatening)
  Sender: FDA-Public Use
  Company Number: GB-TEVA-2020-GB-1819751

PATIENT
  Age: 27 Year
  Sex: Male
  Weight: 73 kg

DRUGS (12)
  1. NICORETTE [Concomitant]
     Active Substance: NICOTINE
     Dosage: PATCH
     Dates: start: 20200721, end: 20200721
  2. MIRTAZAPINE. [Concomitant]
     Active Substance: MIRTAZAPINE
     Dates: start: 20200219
  3. ZOPICLONE [Concomitant]
     Active Substance: ZOPICLONE
     Dates: start: 20200720, end: 20200723
  4. COAL TAR. [Concomitant]
     Active Substance: COAL TAR
     Dosage: AS DIRECTED
     Dates: start: 20200720
  5. OLANZAPINE. [Concomitant]
     Active Substance: OLANZAPINE
     Dates: start: 20200219
  6. SODIUM ALGINATE [Concomitant]
     Active Substance: SODIUM ALGINATE
     Dates: start: 20200529, end: 20200529
  7. AMOXICILLIN. [Suspect]
     Active Substance: AMOXICILLIN
     Dates: start: 20200724
  8. CAPASAL [Concomitant]
     Dosage: USE AS DIRECTED
     Dates: start: 20200701, end: 20200720
  9. NICOTINE. [Concomitant]
     Active Substance: NICOTINE
     Dosage: 1 DF, CARTRIDGE,
     Dates: start: 20200721, end: 20200721
  10. ALGINATES [Concomitant]
     Dosage: 40 ML DAILY;
     Dates: start: 20200528
  11. OXYBUTYNIN. [Concomitant]
     Active Substance: OXYBUTYNIN CHLORIDE
     Dates: start: 20200219, end: 20200707
  12. PARACETAMOL [Concomitant]
     Active Substance: ACETAMINOPHEN
     Dates: start: 20200517, end: 20200517

REACTIONS (2)
  - Chest discomfort [Unknown]
  - Hypersensitivity [Unknown]

NARRATIVE: CASE EVENT DATE: 20200724
